FAERS Safety Report 21774613 (Version 2)
Quarter: 2023Q2

REPORT INFORMATION
  Report Type: Spontaneous
  Country: DE (occurrence: DE)
  Receive Date: 20221224
  Receipt Date: 20230610
  Transmission Date: 20230722
  Serious: Yes (Other)
  Sender: FDA-Public Use
  Company Number: DE-ROCHE-2105217

PATIENT
  Age: 32 Year
  Sex: Female
  Weight: 95 kg

DRUGS (10)
  1. KESIMPTA [Suspect]
     Active Substance: OFATUMUMAB
     Indication: Product used for unknown indication
     Dosage: UNK
     Route: 065
  2. CORTISONE [Suspect]
     Active Substance: CORTISONE
     Indication: Product used for unknown indication
     Dosage: UNK
     Route: 065
  3. OCRELIZUMAB [Suspect]
     Active Substance: OCRELIZUMAB
     Indication: Relapsing-remitting multiple sclerosis
     Dosage: 300 MG
     Route: 042
     Dates: start: 20180405
  4. OCRELIZUMAB [Suspect]
     Active Substance: OCRELIZUMAB
     Dosage: 300 MG
     Route: 042
     Dates: start: 20181101
  5. OCRELIZUMAB [Suspect]
     Active Substance: OCRELIZUMAB
     Dosage: 600 MG
     Route: 042
     Dates: start: 20190502
  6. OCRELIZUMAB [Suspect]
     Active Substance: OCRELIZUMAB
     Dosage: 200 NUMBER OF UNITS IN THE INTERVAL (NEXT INFUSION 600 MG )
     Route: 042
     Dates: start: 20200904
  7. CLARITHROMYCIN [Suspect]
     Active Substance: CLARITHROMYCIN
     Indication: Product used for unknown indication
     Dosage: 0.5  NUMBER OF UNITS IN THE INTERVAL, BID
     Route: 065
     Dates: start: 20220819
  8. DESOGESTREL\ETHINYL ESTRADIOL [Concomitant]
     Active Substance: DESOGESTREL\ETHINYL ESTRADIOL
     Indication: Product used for unknown indication
     Dosage: UNK
     Route: 065
  9. IBUPROFEN [Concomitant]
     Active Substance: IBUPROFEN
     Indication: Product used for unknown indication
     Dosage: 600 MG, AS REQUIRED
     Route: 065
  10. IBUPROFEN [Concomitant]
     Active Substance: IBUPROFEN
     Dosage: 600 MG, AS REQUIRED
     Route: 065

REACTIONS (30)
  - Pneumoperitoneum [Recovered/Resolved]
  - Urethral intrinsic sphincter deficiency [Not Recovered/Not Resolved]
  - Nerve compression [Not Recovered/Not Resolved]
  - Rhinorrhoea [Recovered/Resolved]
  - Back pain [Not Recovered/Not Resolved]
  - Abdominal pain upper [Recovered/Resolved]
  - Oropharyngeal pain [Recovered/Resolved]
  - Muscular weakness [Not Recovered/Not Resolved]
  - Feeling hot [Recovering/Resolving]
  - Areflexia [Not Recovered/Not Resolved]
  - Joint range of motion decreased [Not Recovered/Not Resolved]
  - Disturbance in attention [Not Recovered/Not Resolved]
  - Cardiovascular disorder [Recovered/Resolved]
  - Spinal pain [Not Recovered/Not Resolved]
  - Binge eating [Recovered/Resolved]
  - Insomnia [Recovering/Resolving]
  - Sunburn [Recovered/Resolved]
  - Costochondritis [Recovering/Resolving]
  - Streptococcal infection [Recovered/Resolved]
  - Muscle spasms [Recovered/Resolved]
  - Cystitis noninfective [Not Recovered/Not Resolved]
  - Cystitis [Recovered/Resolved]
  - Neuralgia [Not Recovered/Not Resolved]
  - Throat irritation [Recovered/Resolved]
  - Nausea [Recovered/Resolved]
  - Weight increased [Recovered/Resolved]
  - Fatigue [Not Recovered/Not Resolved]
  - Fatigue [Recovered/Resolved]
  - Myalgia [Recovered/Resolved]
  - Nasopharyngitis [Recovered/Resolved]

NARRATIVE: CASE EVENT DATE: 20180405
